FAERS Safety Report 8923602 (Version 1)
Quarter: 2012Q4

REPORT INFORMATION
  Report Type: Spontaneous
  Country: DK (occurrence: None)
  Receive Date: 20121114
  Receipt Date: 20121114
  Transmission Date: 20130627
  Serious: Yes (Hospitalization)
  Sender: FDA-Public Use
  Company Number: E2B_7171903

PATIENT
  Age: 45 Year
  Sex: Female

DRUGS (1)
  1. EUTHYROX [Suspect]
     Indication: MYXOEDEMA
     Dosage: og 100 mikrogram
     Route: 048
     Dates: start: 20091001, end: 20121024

REACTIONS (7)
  - Nausea [None]
  - Breast discharge [None]
  - Breast pain [None]
  - Fatigue [None]
  - Hypomenorrhoea [None]
  - Weight decreased [None]
  - Palpitations [None]
